FAERS Safety Report 7007857-9 (Version None)
Quarter: 2010Q3

REPORT INFORMATION
  Report Type: 
  Country: None (occurrence: None)
  Receive Date: 20100922
  Receipt Date: 20100915
  Transmission Date: 20110219
  Serious: Yes (Hospitalization)
  Sender: FDA-Public Use
  Company Number: US-ROCHE-727940

PATIENT
  Sex: Female

DRUGS (7)
  1. BEVACIZUMAB [Suspect]
     Indication: BREAST CANCER
     Dosage: DATE OF LAST DOSE: 19 AUGUST 2010, DOSE, ROUTE, FREQUENCY: FROM PROTOCOL.
     Route: 042
     Dates: start: 20100819
  2. DOCETAXEL [Suspect]
     Indication: BREAST CANCER
     Dosage: DATE OF LAST DOSE: 19 AUGUST 2010, DOSE, ROUTE, FREQUENCY: FROM PROTOCOL.
     Route: 042
     Dates: start: 20100819
  3. CYCLOPHOSPHAMIDE [Suspect]
     Indication: BREAST CANCER
     Dosage: DATE OF LAST DOSE: 19 AUGUST 2010, DOSE, ROUTE, FREQUENCY: FROM PROTOCOL.
     Route: 042
     Dates: start: 20100819
  4. COMPAZINE [Concomitant]
  5. SEROQUEL [Concomitant]
  6. DECADRON [Concomitant]
  7. NEULASTA [Concomitant]
     Dates: start: 20100820

REACTIONS (1)
  - SINUS TACHYCARDIA [None]
